FAERS Safety Report 4400203-6 (Version None)
Quarter: 2004Q2

REPORT INFORMATION
  Report Type: 
  Country: None (occurrence: None)
  Receive Date: 20040618
  Receipt Date: 20040401
  Transmission Date: 20050107
  Serious: No
  Sender: FDA-Public Use
  Company Number: US-JNJFOC-20040400408

PATIENT
  Age: 17 Year
  Sex: Female
  Weight: 70.3075 kg

DRUGS (2)
  1. ORTHO EVRA [Suspect]
     Indication: CONTRACEPTION
     Dosage: 1 DOSE(S), 3  IN 4 WEEK, TRANSDERMAL
     Route: 062
     Dates: start: 20030901, end: 20040101
  2. ORTHO EVRA [Suspect]
     Indication: MENSTRUAL DISORDER
     Dosage: 1 DOSE(S), 3  IN 4 WEEK, TRANSDERMAL
     Route: 062
     Dates: start: 20030901, end: 20040101

REACTIONS (1)
  - DYSFUNCTIONAL UTERINE BLEEDING [None]
